APPROVED DRUG PRODUCT: PREMASOL 10% IN PLASTIC CONTAINER
Active Ingredient: AMINO ACIDS
Strength: 10% (10GM/100ML)
Dosage Form/Route: INJECTABLE;INJECTION
Application: A075880 | Product #002
Applicant: BAXTER HEALTHCARE CORP
Approved: Jun 19, 2003 | RLD: No | RS: No | Type: RX